FAERS Safety Report 8944705 (Version 2)
Quarter: 2013Q1

REPORT INFORMATION
  Report Type: Spontaneous
  Country: US (occurrence: US)
  Receive Date: 20121204
  Receipt Date: 20130305
  Transmission Date: 20140127
  Serious: No
  Sender: FDA-Public Use
  Company Number: US-AMGEN-USASP2012064497

PATIENT
  Age: 69 Year
  Sex: Female
  Weight: 52.15 kg

DRUGS (18)
  1. ENBREL [Suspect]
     Indication: RHEUMATOID ARTHRITIS
     Dosage: 50 MG, QWK
     Route: 058
     Dates: start: 20120622, end: 20121005
  2. LIVALO [Concomitant]
     Dosage: 4 MG, UNK
  3. MOTRIN [Concomitant]
     Dosage: 400 MG, UNK
  4. PLAQUENIL                          /00072602/ [Concomitant]
     Dosage: 200 MG, UNK
  5. PREDNISONE [Concomitant]
     Dosage: 10 MG, UNK
  6. ULTRAM                             /00599202/ [Concomitant]
     Dosage: 200 MG, ER
  7. NIASPAN [Concomitant]
     Dosage: 500 MG, ER
  8. ATENOLOL [Concomitant]
     Dosage: 100 MG, UNK
  9. ASPIRIN [Concomitant]
     Dosage: 325 MG, UNK
  10. ZANTAC [Concomitant]
     Dosage: 75 UNK, UNK
  11. FLEXERIL                           /00428402/ [Concomitant]
     Dosage: 5 MG, UNK
  12. CALCIUM [Concomitant]
     Dosage: 500 MG, UNK
  13. YEAST [Concomitant]
     Dosage: 600 MG, RED YEAST
  14. VESICARE [Concomitant]
     Dosage: 5 MG, UNK
  15. MULTIVITAMINS, PLAIN [Concomitant]
     Dosage: UNK
  16. FOLIC ACID [Concomitant]
     Dosage: 20 MG, UNK
  17. OMEGA 3                            /01334101/ [Concomitant]
     Dosage: 1000 MG, UNK
  18. SOOTHE                             /00256502/ [Concomitant]
     Dosage: UNK

REACTIONS (3)
  - Productive cough [Not Recovered/Not Resolved]
  - Laryngitis [Not Recovered/Not Resolved]
  - Influenza [Unknown]
